FAERS Safety Report 4565978-4 (Version None)
Quarter: 2005Q1

REPORT INFORMATION
  Report Type: 
  Country: None (occurrence: None)
  Receive Date: 20050128
  Receipt Date: 20050120
  Transmission Date: 20050727
  Serious: Yes (Death)
  Sender: FDA-Public Use
  Company Number: 05H-087-0287582

PATIENT
  Age: 24 Year
  Sex: Female
  Weight: 55.6 kg

DRUGS (3)
  1. EPINEPHRINE INJECTION (EPINEPHRINE) [Suspect]
     Indication: RESUSCITATION
     Dosage: 1 MG, ONCE, INJECTION
  2. BROMPERIDOL [Suspect]
     Indication: SCHIZOPHRENIA
  3. SODIUM CHLORIDE [Concomitant]

REACTIONS (6)
  - CARDIAC ARREST [None]
  - DRUG INTERACTION [None]
  - POLYDIPSIA [None]
  - SHOCK [None]
  - SUDDEN DEATH [None]
  - WATER INTOXICATION [None]
